FAERS Safety Report 8707520 (Version 6)
Quarter: 2013Q2

REPORT INFORMATION
  Report Type: Spontaneous
  Country: US (occurrence: US)
  Receive Date: 20120804
  Receipt Date: 20130426
  Transmission Date: 20140414
  Serious: Yes (Hospitalization, Other)
  Sender: FDA-Public Use
  Company Number: US-ASTRAZENECA-2012SE54402

PATIENT
  Age: 66 Year
  Sex: Female

DRUGS (13)
  1. NEXIUM [Suspect]
     Indication: ULCER HAEMORRHAGE
     Route: 048
  2. NEXIUM [Suspect]
     Indication: DYSPEPSIA
     Route: 048
  3. ZOLOFT [Concomitant]
     Route: 048
  4. VICODIN [Concomitant]
     Indication: PAIN
     Dosage: 10/660 MG 1 TABLET AS NEEDED EVERY SIX HOURS
     Route: 048
  5. ADVAIR DISKUS [Concomitant]
     Dosage: 250/50  MCG 1 PUFF BID
     Route: 055
  6. VENTOLIN HFA [Concomitant]
     Dosage: 108 MCG ACT TWO PUFFS, THREE TIMES A DAY AS NEEDED
     Route: 055
  7. NORVASC [Concomitant]
     Route: 048
  8. METHOCARBAMOL [Concomitant]
     Route: 048
     Dates: end: 20121223
  9. METHOCARBAMOL [Concomitant]
     Route: 048
  10. BENICAR HCT [Concomitant]
     Dosage: 40/12.5 MG 1 TABLET DAILY
     Route: 048
  11. HYDROXYZINE [Concomitant]
     Route: 048
  12. HYDROXYZINE [Concomitant]
     Route: 048
  13. ALPRAZOLAM [Concomitant]
     Route: 048

REACTIONS (17)
  - Myocardial infarction [Unknown]
  - Ulcer haemorrhage [Unknown]
  - Dyspepsia [Unknown]
  - Gastrooesophageal reflux disease [Unknown]
  - Tooth abscess [Unknown]
  - Essential hypertension [Unknown]
  - Hyperlipidaemia [Unknown]
  - Pain [Unknown]
  - Sleep disorder due to a general medical condition [Unknown]
  - Hernia [Unknown]
  - Gastric disorder [Unknown]
  - Dyspepsia [Unknown]
  - Bronchitis [Unknown]
  - Influenza [Unknown]
  - Nausea [Unknown]
  - Depression [Unknown]
  - Drug dose omission [Unknown]
